FAERS Safety Report 12241252 (Version 2)
Quarter: 2016Q2

REPORT INFORMATION
  Report Type: Spontaneous
  Country: FR (occurrence: FR)
  Receive Date: 20160406
  Receipt Date: 20160429
  Transmission Date: 20160815
  Serious: Yes (Hospitalization)
  Sender: FDA-Public Use
  Company Number: FR-EMD SERONO-8075625

PATIENT
  Age: 6 Year
  Sex: Female
  Weight: 4 kg

DRUGS (3)
  1. OVITRELLE [Suspect]
     Active Substance: CHORIOGONADOTROPIN ALFA
     Indication: PREGNANCY
     Route: 064
  2. PUREGON                            /01348901/ [Suspect]
     Active Substance: FOLLITROPIN
     Indication: PREGNANCY
     Route: 064
  3. CLOMID [Suspect]
     Active Substance: CLOMIPHENE CITRATE
     Indication: PREGNANCY
     Route: 064

REACTIONS (2)
  - Adnexal torsion [Recovered/Resolved with Sequelae]
  - Ovarian cyst [Recovered/Resolved with Sequelae]

NARRATIVE: CASE EVENT DATE: 20150612
